FAERS Safety Report 22650016 (Version 1)
Quarter: 2023Q2

REPORT INFORMATION
  Report Type: Spontaneous
  Country: CN (occurrence: CN)
  Receive Date: 20230628
  Receipt Date: 20230628
  Transmission Date: 20230721
  Serious: Yes (Other)
  Sender: FDA-Public Use
  Company Number: CN-009507513-2306CHN011748

PATIENT
  Age: 87 Year
  Sex: Female
  Weight: 45 kg

DRUGS (2)
  1. CILASTATIN SODIUM\IMIPENEM [Suspect]
     Active Substance: CILASTATIN SODIUM\IMIPENEM
     Indication: Pneumonia
     Dosage: 1 G, Q12H
     Route: 041
     Dates: start: 20230526, end: 20230531
  2. CHLORIDE SODIUM [Concomitant]
     Indication: Medication dilution
     Dosage: 100 ML, Q12H
     Route: 041
     Dates: start: 20230526, end: 20230531

REACTIONS (3)
  - Epilepsy [Recovered/Resolved]
  - Epilepsy [Recovered/Resolved]
  - Incorrect dosage administered [Unknown]

NARRATIVE: CASE EVENT DATE: 20230526
